FAERS Safety Report 19961881 (Version 1)
Quarter: 2021Q4

REPORT INFORMATION
  Report Type: Spontaneous
  Country: DE (occurrence: DE)
  Receive Date: 20211018
  Receipt Date: 20211018
  Transmission Date: 20220303
  Serious: Yes (Other)
  Sender: FDA-Public Use
  Company Number: DE-ORGANON-O2110DEU000861

PATIENT
  Age: 70 Year
  Sex: Male

DRUGS (1)
  1. LOSARTAN [Suspect]
     Active Substance: LOSARTAN
     Indication: Hypertension
     Dosage: APPROXIMATELY 100MG EVERYDAY (FORMULATION REPORTED AS FILM COATED TABLET)
     Route: 048
     Dates: start: 2011

REACTIONS (1)
  - Colon cancer [Unknown]
